FAERS Safety Report 6985254-X (Version None)
Quarter: 2010Q3

REPORT INFORMATION
  Report Type: 
  Country: None (occurrence: None)
  Receive Date: 20100915
  Receipt Date: 20100907
  Transmission Date: 20110219
  Serious: No
  Sender: FDA-Public Use
  Company Number: GB-US-EMD SERONO, INC.-7008192

PATIENT
  Sex: Female
  Weight: 76 kg

DRUGS (6)
  1. REBIF [Suspect]
     Indication: RELAPSING-REMITTING MULTIPLE SCLEROSIS
     Dates: start: 20100301
  2. AMITRIPTYLINE HCL [Concomitant]
     Indication: NEURALGIA
     Route: 048
     Dates: start: 20070731
  3. BACLOFEN [Concomitant]
     Indication: MUSCLE SPASMS
     Route: 048
     Dates: start: 20080114
  4. LANSOPRAZOLE [Concomitant]
     Indication: DYSPEPSIA
     Route: 048
     Dates: start: 20090528
  5. BUTRANS [Concomitant]
     Indication: PAIN
     Route: 061
     Dates: start: 20100517
  6. COLPERMIN [Concomitant]
     Indication: IRRITABLE BOWEL SYNDROME
     Dates: start: 20090209

REACTIONS (4)
  - ARTHRALGIA [None]
  - BLOOD TEST ABNORMAL [None]
  - DIABETES MELLITUS [None]
  - HEPATIC ENZYME INCREASED [None]
